FAERS Safety Report 13469419 (Version 1)
Quarter: 2017Q2

REPORT INFORMATION
  Report Type: Spontaneous
  Country: IN (occurrence: IN)
  Receive Date: 20170421
  Receipt Date: 20170421
  Transmission Date: 20170830
  Serious: Yes (Death, Hospitalization, Other)
  Sender: FDA-Public Use
  Company Number: IN-BAUSCH-BL-2017-010499

PATIENT
  Age: 46 Year
  Sex: Female

DRUGS (2)
  1. PARACETAMOL [Suspect]
     Active Substance: ACETAMINOPHEN
     Indication: PYREXIA
     Route: 065
  2. 5-FLUOROURACIL [Suspect]
     Active Substance: FLUOROURACIL
     Indication: THROAT CANCER
     Dosage: FIRST CYCLE OF CHEMOTHERAPY
     Route: 042

REACTIONS (4)
  - Febrile neutropenia [Unknown]
  - Death [Fatal]
  - Dyspnoea [Unknown]
  - Haematemesis [Unknown]
